FAERS Safety Report 6392357-X (Version None)
Quarter: 2009Q4

REPORT INFORMATION
  Report Type: 
  Country: None (occurrence: None)
  Receive Date: 20091007
  Receipt Date: 20091002
  Transmission Date: 20100525
  Serious: Yes (Death, Hospitalization)
  Sender: FDA-Public Use
  Company Number: PHHY2009BR42757

PATIENT
  Sex: Male
  Weight: 115 kg

DRUGS (9)
  1. GALVUS [Suspect]
     Indication: DIABETES MELLITUS
     Dosage: 1 TABLET (100 MG) IN THE MORNING
     Route: 048
     Dates: start: 20080101
  2. DIOVAN [Suspect]
     Indication: HYPERTENSION
     Dosage: 1 DF, BID (IN THE MORNING AND EVENING)
     Route: 048
  3. ANCORON [Concomitant]
     Indication: CARDIAC DISORDER
     Dosage: 100 MG, UNK
  4. ANCORON [Concomitant]
     Dosage: 50 MG, UNK
     Route: 042
  5. NATRILIX [Concomitant]
  6. AAS [Concomitant]
     Dosage: 100 MG, UNK
  7. GLIMEPIRIDE [Concomitant]
     Indication: DIABETES MELLITUS
  8. ARADOIS [Concomitant]
     Dosage: 25 MG, UNK
  9. DECADRON [Concomitant]
     Indication: PAIN

REACTIONS (21)
  - BLOOD PRESSURE FLUCTUATION [None]
  - BRAIN NEOPLASM MALIGNANT [None]
  - BRAIN TUMOUR OPERATION [None]
  - CEREBROVASCULAR ACCIDENT [None]
  - COMA [None]
  - CONVULSION [None]
  - DYSURIA [None]
  - FEELING ABNORMAL [None]
  - HEMIPLEGIA [None]
  - ISCHAEMIA [None]
  - MONOPLEGIA [None]
  - ORAL DISORDER [None]
  - PAIN [None]
  - PARALYSIS [None]
  - PNEUMONIA [None]
  - PYREXIA [None]
  - RENAL FAILURE ACUTE [None]
  - SEPTIC SHOCK [None]
  - SWELLING [None]
  - VOMITING [None]
  - WOUND [None]
